FAERS Safety Report 15322137 (Version 1)
Quarter: 2018Q3

REPORT INFORMATION
  Report Type: Spontaneous
  Country: US (occurrence: US)
  Receive Date: 20180827
  Receipt Date: 20180827
  Transmission Date: 20181010
  Serious: No
  Sender: FDA-Public Use
  Company Number: US-LEO PHARMA-310638

PATIENT
  Age: 77 Year
  Sex: Female
  Weight: 67.57 kg

DRUGS (2)
  1. ANTIHYPERTENSIVES [Concomitant]
     Active Substance: UNSPECIFIED INGREDIENT
     Indication: PRODUCT USED FOR UNKNOWN INDICATION
     Dates: start: 1998
  2. PROTOPIC [Suspect]
     Active Substance: TACROLIMUS
     Indication: DERMATITIS
     Dosage: ONE APPLICATION, SINGLE
     Route: 061
     Dates: start: 20180815, end: 20180815

REACTIONS (1)
  - Application site pain [Recovered/Resolved]
